FAERS Safety Report 17063193 (Version 1)
Quarter: 2019Q4

REPORT INFORMATION
  Report Type: Spontaneous
  Country: US (occurrence: US)
  Receive Date: 20191121
  Receipt Date: 20191121
  Transmission Date: 20200122
  Serious: Yes (Disabling)
  Sender: FDA-Public Use
  Company Number: None

PATIENT
  Age: 21 Year
  Sex: Male
  Weight: 54 kg

DRUGS (5)
  1. COENZYME Q10 [Concomitant]
     Active Substance: UBIDECARENONE
  2. MAGNESIUM [Concomitant]
     Active Substance: MAGNESIUM
  3. MULTIVITAMIN [Concomitant]
     Active Substance: VITAMINS
  4. TUMERIC [Concomitant]
     Active Substance: HERBALS\TURMERIC
  5. CIPROFLOXACIN. [Suspect]
     Active Substance: CIPROFLOXACIN
     Indication: SINUSITIS
     Dosage: ?          QUANTITY:2 TABLET(S);?
     Route: 048

REACTIONS (26)
  - Depressed mood [None]
  - Nausea [None]
  - Amnesia [None]
  - Dizziness [None]
  - Headache [None]
  - Gait disturbance [None]
  - Anxiety [None]
  - Fatigue [None]
  - Ear discomfort [None]
  - Mental impairment [None]
  - Tremor [None]
  - Muscle twitching [None]
  - Weight decreased [None]
  - Paraesthesia [None]
  - Tenderness [None]
  - Asthenia [None]
  - Balance disorder [None]
  - Nervousness [None]
  - Visual impairment [None]
  - Dry eye [None]
  - Dry mouth [None]
  - Middle insomnia [None]
  - Hypoaesthesia [None]
  - Dehydration [None]
  - Abnormal dreams [None]
  - Hypoacusis [None]

NARRATIVE: CASE EVENT DATE: 20191003
